FAERS Safety Report 10506703 (Version 2)
Quarter: 2014Q4

REPORT INFORMATION
  Report Type: Spontaneous
  Country: US (occurrence: US)
  Receive Date: 20141009
  Receipt Date: 20141009
  Transmission Date: 20150528
  Serious: No
  Sender: FDA-Public Use
  Company Number: US-ELI_LILLY_AND_COMPANY-US201408000146

PATIENT
  Sex: Male

DRUGS (8)
  1. AXIRON [Suspect]
     Active Substance: TESTOSTERONE
     Dosage: 90 MG, QD
     Route: 065
  2. LIPITOR [Concomitant]
     Active Substance: ATORVASTATIN CALCIUM
  3. LOSARTAN [Concomitant]
     Active Substance: LOSARTAN
     Route: 065
  4. PLAVIX [Concomitant]
     Active Substance: CLOPIDOGREL BISULFATE
     Route: 065
  5. AXIRON [Suspect]
     Active Substance: TESTOSTERONE
     Dosage: 60 MG, UNK
  6. AXIRON [Suspect]
     Active Substance: TESTOSTERONE
     Dosage: 75 MG, UNK
  7. TOPROL XL [Concomitant]
     Active Substance: METOPROLOL SUCCINATE
     Route: 065
  8. AXIRON [Suspect]
     Active Substance: TESTOSTERONE
     Indication: BLOOD TESTOSTERONE DECREASED
     Dosage: 60 MG, UNK
     Route: 065
     Dates: start: 201307

REACTIONS (6)
  - Drug dose omission [Unknown]
  - Blood testosterone decreased [Unknown]
  - Drug ineffective [Unknown]
  - Intentional product misuse [Unknown]
  - Memory impairment [Unknown]
  - Blood testosterone decreased [Recovered/Resolved]
